FAERS Safety Report 17461841 (Version 3)
Quarter: 2020Q2

REPORT INFORMATION
  Report Type: Report from Study
  Country: None (occurrence: CL)
  Receive Date: 20200226
  Receipt Date: 20200530
  Transmission Date: 20200713
  Serious: Yes (Other)
  Sender: FDA-Public Use
  Company Number: CL-ABBVIE-20K-034-3289447-00

PATIENT
  Age: 57 Year
  Sex: Female

DRUGS (13)
  1. ARTROTIN [Concomitant]
     Indication: PRODUCT USED FOR UNKNOWN INDICATION
  2. SUPRACALM [Concomitant]
     Indication: PRODUCT USED FOR UNKNOWN INDICATION
  3. TRAVIATA [Concomitant]
     Indication: PRODUCT USED FOR UNKNOWN INDICATION
  4. OMEPRAZOLE. [Concomitant]
     Active Substance: OMEPRAZOLE
     Indication: PRODUCT USED FOR UNKNOWN INDICATION
  5. FOLISANIN [Concomitant]
     Indication: PRODUCT USED FOR UNKNOWN INDICATION
  6. TRADOX [Concomitant]
     Indication: BIPOLAR DISORDER
  7. BUXON [Concomitant]
     Indication: PRODUCT USED FOR UNKNOWN INDICATION
  8. SPIRON [Concomitant]
     Indication: PRODUCT USED FOR UNKNOWN INDICATION
  9. TRAMAL [Concomitant]
     Active Substance: TRAMADOL
     Indication: PRODUCT USED FOR UNKNOWN INDICATION
  10. CABRAL [Concomitant]
     Indication: PRODUCT USED FOR UNKNOWN INDICATION
  11. TEGRETAL [Concomitant]
     Active Substance: CARBAMAZEPINE
     Indication: PRODUCT USED FOR UNKNOWN INDICATION
  12. HUMIRA [Suspect]
     Active Substance: ADALIMUMAB
     Indication: RHEUMATOID ARTHRITIS
     Route: 058
     Dates: start: 20190418
  13. ZODOL [Concomitant]
     Indication: PRODUCT USED FOR UNKNOWN INDICATION

REACTIONS (6)
  - Musculoskeletal disorder [Unknown]
  - Gait disturbance [Not Recovered/Not Resolved]
  - Pain in extremity [Not Recovered/Not Resolved]
  - Post procedural complication [Not Recovered/Not Resolved]
  - Pain in extremity [Not Recovered/Not Resolved]
  - Foot deformity [Not Recovered/Not Resolved]

NARRATIVE: CASE EVENT DATE: 20200124
